FAERS Safety Report 8906249 (Version 1)
Quarter: 2012Q4

REPORT INFORMATION
  Report Type: Spontaneous
  Country: US (occurrence: None)
  Receive Date: 20121112
  Receipt Date: 20121112
  Transmission Date: 20130627
  Serious: No
  Sender: FDA-Public Use
  Company Number: None

PATIENT
  Sex: Female

DRUGS (1)
  1. METOPROLOL [Suspect]
     Dosage: 180 tabs  1 twice daily  po
     Dates: start: 20111027, end: 20120820

REACTIONS (1)
  - Dyspnoea [None]
